FAERS Safety Report 6189810-0 (Version None)
Quarter: 2009Q2

REPORT INFORMATION
  Report Type: 
  Country: None (occurrence: None)
  Receive Date: 20090514
  Receipt Date: 20090506
  Transmission Date: 20091009
  Serious: Yes (Other)
  Sender: FDA-Public Use
  Company Number: CA-ASTRAZENECA-2009AC01309

PATIENT
  Age: 34 Year
  Sex: Female

DRUGS (3)
  1. TAMOXIFEN CITRATE [Suspect]
     Indication: BREAST CANCER
  2. TAMOXIFEN CITRATE [Suspect]
  3. TAMOXIFEN CITRATE [Suspect]

REACTIONS (4)
  - DEPRESSION [None]
  - HOT FLUSH [None]
  - SOMNOLENCE [None]
  - SUICIDAL IDEATION [None]
